FAERS Safety Report 12011061 (Version 2)
Quarter: 2016Q2

REPORT INFORMATION
  Report Type: Spontaneous
  Country: US (occurrence: US)
  Receive Date: 20160205
  Receipt Date: 20160526
  Transmission Date: 20160815
  Serious: No
  Sender: FDA-Public Use
  Company Number: US-ACTELION PHARMACEUTICALS US, INC.-A-NJ2016-130855

PATIENT
  Age: 60 Year
  Sex: Male

DRUGS (6)
  1. METFORMIN [Concomitant]
     Active Substance: METFORMIN HYDROCHLORIDE
     Dosage: 1000 MG, BID
  2. SIMVASTATIN. [Concomitant]
     Active Substance: SIMVASTATIN
     Dosage: 10 MG, UNK
  3. JANUMET [Concomitant]
     Active Substance: METFORMIN HYDROCHLORIDE\SITAGLIPTIN PHOSPHATE
     Dosage: UNK MG, UNK
  4. AMARYL [Concomitant]
     Active Substance: GLIMEPIRIDE
     Dosage: 4 MG, UNK
  5. TRACLEER [Suspect]
     Active Substance: BOSENTAN
     Indication: PULMONARY ARTERIAL HYPERTENSION
     Dosage: UNK, BID
     Route: 048
     Dates: start: 201205
  6. ENALAPRIL [Concomitant]
     Active Substance: ENALAPRIL
     Dosage: 10 MG, UNK

REACTIONS (1)
  - Glycosylated haemoglobin increased [Not Recovered/Not Resolved]

NARRATIVE: CASE EVENT DATE: 20160109
